FAERS Safety Report 17296752 (Version 1)
Quarter: 2020Q1

REPORT INFORMATION
  Report Type: Spontaneous
  Country: US (occurrence: US)
  Receive Date: 20200122
  Receipt Date: 20200122
  Transmission Date: 20200409
  Serious: Yes (Hospitalization)
  Sender: FDA-Public Use
  Company Number: US-TEVA-2020-US-1171103

PATIENT
  Age: 19 Year
  Sex: Male

DRUGS (4)
  1. DAUNORUBICIN [Suspect]
     Active Substance: DAUNORUBICIN
     Indication: ACUTE MYELOID LEUKAEMIA
     Route: 065
  2. CYTARABINE. [Interacting]
     Active Substance: CYTARABINE
     Indication: ACUTE MYELOID LEUKAEMIA
     Route: 065
  3. ACAM2000 [Suspect]
     Active Substance: VACCINIA VIRUS STRAIN NEW YORK CITY BOARD OF HEALTH LIVE ANTIGEN
     Indication: SMALLPOX IMMUNISATION
     Route: 065
  4. TECOVIRIMAT. [Interacting]
     Active Substance: TECOVIRIMAT
     Indication: VACCINIA VIRUS INFECTION
     Dosage: 1200 MILLIGRAM DAILY;
     Route: 048

REACTIONS (5)
  - Post vaccination autoinoculation [Recovered/Resolved]
  - Drug interaction [Unknown]
  - Off label use [Unknown]
  - Drug level decreased [Recovered/Resolved]
  - Vaccinia virus infection [Recovered/Resolved]
